FAERS Safety Report 12283806 (Version 2)
Quarter: 2017Q2

REPORT INFORMATION
  Report Type: Spontaneous
  Country: US (occurrence: US)
  Receive Date: 20160419
  Receipt Date: 20170417
  Transmission Date: 20170830
  Serious: Yes (Other)
  Sender: FDA-Public Use
  Company Number: US-BANPHARM-20154472

PATIENT
  Age: 53 Year
  Sex: Male
  Weight: 86.18 kg

DRUGS (2)
  1. ALEVE [Suspect]
     Active Substance: NAPROXEN SODIUM
     Indication: PAIN
     Dosage: 2 DF, PRN,
     Route: 048
  2. MULTIVITAMIN [Concomitant]
     Active Substance: VITAMINS

REACTIONS (3)
  - Blood pressure increased [Recovered/Resolved]
  - Hypersensitivity [Recovered/Resolved]
  - Rash macular [Recovered/Resolved]
